APPROVED DRUG PRODUCT: LIDODERM
Active Ingredient: LIDOCAINE
Strength: 5%
Dosage Form/Route: PATCH;TOPICAL
Application: N020612 | Product #001 | TE Code: AB
Applicant: TEIKOKU PHARMA USA INC
Approved: Mar 19, 1999 | RLD: Yes | RS: Yes | Type: RX